FAERS Safety Report 6242014-5 (Version None)
Quarter: 2009Q2

REPORT INFORMATION
  Report Type: 
  Country: None (occurrence: None)
  Receive Date: 20090622
  Receipt Date: 20090605
  Transmission Date: 20091009
  Serious: Yes (Other)
  Sender: FDA-Public Use
  Company Number: APP200900310

PATIENT
  Sex: Female
  Weight: 1.04 kg

DRUGS (3)
  1. CARBOPLATIN [Suspect]
     Indication: NON-SMALL CELL LUNG CANCER METASTATIC
     Dosage: AUC 5 (DAY 1) ONE WEEK POSTPARTUM
  2. GEMCITABINE [Suspect]
     Indication: NON-SMALL CELL LUNG CANCER METASTATIC
     Dosage: SEE IMAGE
  3. STEROIDS [Suspect]
     Indication: DRUG USE FOR UNKNOWN INDICATION

REACTIONS (8)
  - ANAEMIA [None]
  - CAESAREAN SECTION [None]
  - INCREASED UPPER AIRWAY SECRETION [None]
  - LUNG CONSOLIDATION [None]
  - LUNG DISORDER [None]
  - MATERNAL DRUGS AFFECTING FOETUS [None]
  - NEUTROPHILIA [None]
  - STAPHYLOCOCCAL SEPSIS [None]
